FAERS Safety Report 10332705 (Version 6)
Quarter: 2015Q2

REPORT INFORMATION
  Report Type: Report from Study
  Country: JP (occurrence: JP)
  Receive Date: 20140722
  Receipt Date: 20150613
  Transmission Date: 20150821
  Serious: Yes (Hospitalization)
  Sender: FDA-Public Use
  Company Number: PHHO2014JP010041

PATIENT
  Age: 54 Year
  Sex: Female
  Weight: 74 kg

DRUGS (34)
  1. LDK378 [Suspect]
     Active Substance: CERITINIB
     Dosage: 600 MG, QD
     Route: 048
     Dates: start: 20140819
  2. OXYCONTIN [Concomitant]
     Active Substance: OXYCODONE HYDROCHLORIDE
     Dosage: 60 MG, BID
     Route: 048
     Dates: start: 20141022
  3. PARIET [Concomitant]
     Active Substance: RABEPRAZOLE SODIUM
     Indication: GASTRITIS PROPHYLAXIS
     Dosage: 10 MG, UNK
     Route: 048
  4. DERMOVATE [Concomitant]
     Active Substance: CLOBETASOL
     Indication: DRY SKIN
     Dosage: UNK
     Route: 065
     Dates: start: 20150325
  5. BESOFTEN [Concomitant]
     Active Substance: SODIUM ALGINATE
     Indication: DRY SKIN PROPHYLAXIS
     Dosage: UNK
     Route: 061
  6. URSODEOXYCHOLIC ACID [Concomitant]
     Active Substance: URSODIOL
     Indication: PROPHYLAXIS
     Dosage: UNK
     Route: 065
  7. OXYCONTIN [Concomitant]
     Active Substance: OXYCODONE HYDROCHLORIDE
     Indication: CANCER PAIN
     Dosage: 120 MG, UNK
     Route: 048
     Dates: start: 20140531, end: 20140717
  8. URSO [Concomitant]
     Active Substance: URSODIOL
     Indication: PROPHYLAXIS
     Dosage: 300 MG, UNK
     Route: 048
  9. AMITIZA [Concomitant]
     Active Substance: LUBIPROSTONE
     Indication: CONSTIPATION
     Dosage: 24 UG, BID
     Route: 048
     Dates: start: 20140626
  10. LECICARBON [Concomitant]
     Active Substance: SODIUM BICARBONATE\SODIUM PHOSPHATE, MONOBASIC
     Indication: CONSTIPATION
     Dosage: UNK
     Route: 054
     Dates: start: 20140625
  11. PRIMPERAN [Concomitant]
     Active Substance: METOCLOPRAMIDE HYDROCHLORIDE
     Indication: NAUSEA
     Dosage: UNK
     Route: 048
     Dates: start: 20140621
  12. HIRUDOID [Concomitant]
     Active Substance: GLYCOSAMINOGLYCANS
     Indication: DRY SKIN
     Dosage: UNK
     Route: 061
  13. GLYCERIN. [Concomitant]
     Active Substance: GLYCERIN
     Indication: CONSTIPATION
     Dosage: UNK
     Route: 065
     Dates: start: 20150520
  14. MEROPEN [Concomitant]
     Active Substance: MEROPENEM
     Indication: PRODUCT USED FOR UNKNOWN INDICATION
     Route: 065
  15. PETROLATUM SALICYLATE [Concomitant]
     Indication: DRY SKIN
     Dosage: UNK
     Route: 065
     Dates: start: 20141224
  16. LDK378 [Suspect]
     Active Substance: CERITINIB
     Indication: LUNG NEOPLASM MALIGNANT
     Dosage: 750 MG, QD
     Route: 048
     Dates: start: 20140618, end: 20140711
  17. MOSAPRIDE CITRATE [Concomitant]
     Active Substance: MOSAPRIDE CITRATE
     Indication: GASTRITIS PROPHYLAXIS
     Dosage: 5 MG, TID
     Route: 048
     Dates: start: 20140709
  18. LACTULOSE. [Concomitant]
     Active Substance: LACTULOSE
     Indication: CONSTIPATION
     Dosage: 60 MG, UNK
     Route: 048
  19. WYPAX [Concomitant]
     Active Substance: LORAZEPAM
     Indication: ANXIETY DISORDER
     Dosage: UNK
     Route: 048
  20. RESTAMIN [Concomitant]
     Active Substance: DIPHENHYDRAMINE
     Indication: PRURITUS
     Dosage: UNK
     Route: 061
     Dates: start: 20140621
  21. POSTERISAN [Concomitant]
     Active Substance: LIDOCAINE
     Indication: PROPHYLAXIS
     Dosage: UNK
     Route: 054
  22. ACETAMINOPHEN. [Concomitant]
     Active Substance: ACETAMINOPHEN
     Indication: PYREXIA
     Route: 065
  23. SENNOSIDE [Concomitant]
     Active Substance: SENNOSIDES
     Indication: CONSTIPATION
     Dosage: 24 MG, QD
     Route: 048
     Dates: start: 20140623
  24. PURSENID [Concomitant]
     Indication: CONSTIPATION
     Dosage: UNK
     Route: 048
     Dates: start: 20140723
  25. DECADRON [Concomitant]
     Active Substance: DEXAMETHASONE
     Indication: BRAIN OEDEMA
     Dosage: 0.5 MG, UNK
     Route: 048
     Dates: start: 20140709, end: 20150520
  26. SPIRONOLACTONE. [Concomitant]
     Active Substance: SPIRONOLACTONE
     Indication: OEDEMA
     Dosage: 25 MG, QD
     Route: 048
  27. LOXOPROFEN [Concomitant]
     Active Substance: LOXOPROFEN
     Indication: CANCER PAIN
     Dosage: UNK
     Route: 048
  28. SODIUM PICOSULFATE [Concomitant]
     Active Substance: SODIUM PICOSULFATE
     Indication: CONSTIPATION
     Dosage: UNK, PRN
     Route: 048
     Dates: start: 20140624
  29. ALFAROL [Concomitant]
     Active Substance: ALFACALCIDOL
     Indication: PROPHYLAXIS
     Dosage: 1 UG, UNK
     Route: 048
  30. DEPAS [Concomitant]
     Active Substance: ETIZOLAM
     Indication: ANXIETY DISORDER
     Dosage: 1.5 MG, UNK
     Route: 048
  31. MAGMITT [Concomitant]
     Active Substance: MAGNESIUM OXIDE
     Indication: CONSTIPATION
     Dosage: 660 MG, TID
     Route: 048
  32. OXINORM [Concomitant]
     Active Substance: OXYCODONE HYDROCHLORIDE
     Indication: CANCER PAIN
     Dosage: UNK
     Route: 048
     Dates: start: 20140604, end: 20140717
  33. LYRICA [Concomitant]
     Active Substance: PREGABALIN
     Indication: CANCER PAIN
     Dosage: 75 MG, QD
     Route: 048
     Dates: start: 20140714
  34. FUROSEMIDE. [Concomitant]
     Active Substance: FUROSEMIDE
     Indication: OEDEMA
     Dosage: 40 MG, QD
     Route: 048

REACTIONS (2)
  - Biliary tract infection [Not Recovered/Not Resolved]
  - Biliary tract infection [Recovered/Resolved]

NARRATIVE: CASE EVENT DATE: 20140716
